FAERS Safety Report 6597621-7 (Version None)
Quarter: 2010Q1

REPORT INFORMATION
  Report Type: 
  Country: None (occurrence: None)
  Receive Date: 20100219
  Receipt Date: 20100219
  Transmission Date: 20100710
  Serious: Yes (Hospitalization)
  Sender: FDA-Public Use
  Company Number: None

PATIENT
  Age: 64 Year
  Sex: Female

DRUGS (12)
  1. MIRTAZAPINE [Suspect]
     Indication: DEPRESSION
     Dosage: 30 MG AT BEDTIME PO
     Route: 048
     Dates: start: 20091211, end: 20091223
  2. ASPIRIN [Concomitant]
  3. CALCIUM ACETATE [Concomitant]
  4. CYPROHEPTADINE [Concomitant]
  5. ESOMEPRAZOLE MAGNESIUM [Concomitant]
  6. HEPARIN SUBQ [Concomitant]
  7. KEPPRA [Concomitant]
  8. METOPROLOL TARTRATE [Concomitant]
  9. QUETIAPINE [Concomitant]
  10. RISPERIDONE [Concomitant]
  11. VALPROIC ACID [Concomitant]
  12. VANCOMYCIN [Concomitant]

REACTIONS (2)
  - CONVULSION [None]
  - HYPONATRAEMIA [None]
